FAERS Safety Report 4310319-0 (Version None)
Quarter: 2004Q1

REPORT INFORMATION
  Report Type: 
  Country: None (occurrence: None)
  Receive Date: 20040302
  Receipt Date: 20040302
  Transmission Date: 20041129
  Serious: Yes (Other)
  Sender: FDA-Public Use
  Company Number: None

PATIENT

DRUGS (4)
  1. CLOR-TRIMETON SINUS TABLETS [Suspect]
     Indication: HYPERSENSITIVITY
     Dosage: ORAL
     Route: 048
  2. BC POWDER [Concomitant]
  3. ALKA-SELTZER PLUS [Concomitant]
  4. ROBITUSSIN-CF [Concomitant]

REACTIONS (1)
  - CEREBROVASCULAR ACCIDENT [None]
